FAERS Safety Report 8433627-0 (Version None)
Quarter: 2012Q2

REPORT INFORMATION
  Report Type: 
  Country: None (occurrence: None)
  Receive Date: 20120323
  Receipt Date: 20110712
  Transmission Date: 20120825
  Serious: Yes (Hospitalization)
  Sender: FDA-Public Use
  Company Number: 163-21880-11071521

PATIENT
  Age: 80 Year
  Sex: Female

DRUGS (1)
  1. REVLIMID [Suspect]
     Indication: MULTIPLE MYELOMA
     Dosage: 5 MG, DAILY FOR 3 WEEKS ON, THEN 1 WEEK OFF, PO
     Route: 048
     Dates: start: 20110513, end: 20110701

REACTIONS (1)
  - CLOSTRIDIAL INFECTION [None]
